FAERS Safety Report 4455048-8 (Version None)
Quarter: 2004Q3

REPORT INFORMATION
  Report Type: 
  Country: None (occurrence: None)
  Receive Date: 20040921
  Receipt Date: 20040909
  Transmission Date: 20050211
  Serious: Yes (Disabling)
  Sender: FDA-Public Use
  Company Number: SN-BRISTOL-MYERS SQUIBB COMPANY-12703930

PATIENT
  Age: 40 Year
  Sex: Female

DRUGS (5)
  1. EFAVIRENZ TABS 600 MG [Suspect]
     Indication: HIV INFECTION
     Dosage: ONCE DAILY
     Route: 048
     Dates: start: 20040730, end: 20040804
  2. VIREAD [Suspect]
     Indication: HIV INFECTION
     Route: 048
     Dates: start: 20040730, end: 20040804
  3. EMTRIVA [Suspect]
     Indication: HIV INFECTION
     Route: 048
     Dates: start: 20040730, end: 20040804
  4. IRON [Concomitant]
     Dates: start: 20040730
  5. SULFAMETHOXAZOLE + TRIMETHOPRIM [Concomitant]
     Dates: start: 20040730

REACTIONS (4)
  - EYE PAIN [None]
  - EYE REDNESS [None]
  - IMMUNE RECONSTITUTION SYNDROME [None]
  - VISUAL ACUITY REDUCED [None]
